FAERS Safety Report 24133566 (Version 1)
Quarter: 2024Q3

REPORT INFORMATION
  Report Type: Report from Study
  Country: US (occurrence: US)
  Receive Date: 20240724
  Receipt Date: 20240724
  Transmission Date: 20241017
  Serious: Yes (Other)
  Sender: PFIZER
  Company Number: US-PFIZER INC-PV202400031017

PATIENT
  Age: 51 Year
  Sex: Female

DRUGS (5)
  1. IBRANCE [Suspect]
     Active Substance: PALBOCICLIB
     Indication: Breast cancer
     Dosage: 125 MG
     Dates: start: 20240131, end: 20240214
  2. IBRANCE [Suspect]
     Active Substance: PALBOCICLIB
     Dosage: 100 MG, CYCLIC (DAILY FOR 21 DAYS OF A 28 DAY CYCLE)
     Route: 048
     Dates: start: 20240301, end: 20240329
  3. IBRANCE [Suspect]
     Active Substance: PALBOCICLIB
     Dosage: 100 MG, CYCLIC (1 CAPSULE ONCE DAILY FOR 21 DAYS OF A 28 DAY CYCLE)
     Route: 048
     Dates: start: 20240406, end: 20240416
  4. IBRANCE [Suspect]
     Active Substance: PALBOCICLIB
     Dosage: 100 MG, CYCLIC (1 CAPSULE BY MOUTH DAILY FOR 21 DAYS OF A 28 DAY CYCLE)
     Route: 048
     Dates: start: 20240131
  5. LETROZOLE [Concomitant]
     Active Substance: LETROZOLE
     Dosage: UNK

REACTIONS (5)
  - Pneumonia [Unknown]
  - Haemolysis [Unknown]
  - Full blood count decreased [Unknown]
  - Alopecia [Recovering/Resolving]
  - Madarosis [Not Recovered/Not Resolved]

NARRATIVE: CASE EVENT DATE: 20240101
